FAERS Safety Report 23023936 (Version 2)
Quarter: 2023Q4

REPORT INFORMATION
  Report Type: Spontaneous
  Country: JP (occurrence: JP)
  Receive Date: 20231003
  Receipt Date: 20231031
  Transmission Date: 20240109
  Serious: Yes (Other)
  Sender: FDA-Public Use
  Company Number: JP-BRISTOL-MYERS SQUIBB COMPANY-2023-137243

PATIENT
  Age: 66 Year
  Sex: Male
  Weight: 64.6 kg

DRUGS (11)
  1. YERVOY [Suspect]
     Active Substance: IPILIMUMAB
     Indication: Lung adenocarcinoma
     Route: 041
     Dates: start: 20221019, end: 20221221
  2. OPDIVO [Suspect]
     Active Substance: NIVOLUMAB
     Indication: Lung adenocarcinoma
     Dosage: TOTAL NUMBER OF DOSES: 3 TIMES.
     Route: 041
     Dates: start: 20221019, end: 20221221
  3. JANUVIA [Concomitant]
     Active Substance: SITAGLIPTIN PHOSPHATE
     Indication: Diabetes mellitus
     Dosage: START DATE: UNKNOWN (BEFORE 20-AUG-2020), FREQUENCY: ONCE DAILY IN THE MORNING
     Route: 048
  4. DILTIAZEM [Concomitant]
     Active Substance: DILTIAZEM
     Indication: Prinzmetal angina
     Dosage: START DATE: UNKNOWN (BEFORE 20-AUG-2020), FREQUENCY: TWICE DAILY IN THE MORNING AND EVENING
     Route: 048
  5. DAYVIGO [Concomitant]
     Active Substance: LEMBOREXANT
     Indication: Insomnia
     Dosage: ONCE DAILY BEFORE SLEEP
     Route: 048
     Dates: start: 20210927
  6. VONOPRAZAN FUMARATE [Concomitant]
     Active Substance: VONOPRAZAN FUMARATE
     Indication: Prophylaxis
     Dosage: ONCE DAILY IN THE MORNING
     Route: 048
     Dates: start: 20211004
  7. DIETARY SUPPLEMENT\PROBIOTICS [Concomitant]
     Active Substance: DIETARY SUPPLEMENT\PROBIOTICS NOS
     Indication: Diarrhoea
     Dosage: 3DF (TABLETS, CAPSULES, ETC.)
     Route: 048
     Dates: start: 20211115
  8. UNSPECIFIED INGREDIENT [Concomitant]
     Active Substance: UNSPECIFIED INGREDIENT
     Indication: Product used for unknown indication
  9. ISOSORBIDE DINITRATE [Concomitant]
     Active Substance: ISOSORBIDE DINITRATE
     Indication: Prinzmetal angina
     Dosage: START DATE: UNKNOWN (BEFORE 20-AUG-2020), FREQUENCY: TWICE DAILY IN THE MORNING AND EVENING
     Route: 048
  10. PREDNISOLONE [Concomitant]
     Active Substance: PREDNISOLONE
     Indication: Lymphangiosis carcinomatosa
     Dosage: ONCE DAILY IN THE MORNING
     Route: 048
  11. ALENDRONATE SODIUM [Concomitant]
     Active Substance: ALENDRONATE SODIUM
     Indication: Prophylaxis
     Route: 048
     Dates: start: 20211004

REACTIONS (4)
  - Interstitial lung disease [Unknown]
  - Non-small cell lung cancer [Unknown]
  - Pleural effusion [Unknown]
  - Condition aggravated [Unknown]

NARRATIVE: CASE EVENT DATE: 20221129
